FAERS Safety Report 12680505 (Version 10)
Quarter: 2025Q3

REPORT INFORMATION
  Report Type: Report from Study
  Country: CO (occurrence: CO)
  Receive Date: 20160824
  Receipt Date: 20250830
  Transmission Date: 20251020
  Serious: Yes (Hospitalization, Other)
  Sender: NOVARTIS
  Company Number: PHHY2015CO149480

PATIENT
  Age: 39 Year
  Sex: Female
  Weight: 55 kg

DRUGS (15)
  1. TASIGNA [Suspect]
     Active Substance: NILOTINIB
     Indication: Chronic myeloid leukaemia
     Dosage: 400 MG, QD ( (CAPSULE OF 200 EVERY 12 HOURS)
     Route: 048
     Dates: start: 2015, end: 2016
  2. TASIGNA [Suspect]
     Active Substance: NILOTINIB
     Indication: Philadelphia positive chronic myeloid leukaemia
     Route: 048
     Dates: start: 20150805, end: 2016
  3. TASIGNA [Suspect]
     Active Substance: NILOTINIB
     Dosage: 2 DF (150 MG), QD (EVERY 24 HOURS)
     Route: 048
     Dates: start: 20150808
  4. TASIGNA [Suspect]
     Active Substance: NILOTINIB
     Dosage: 2 DF (150 MG), Q12H (EVERY 12 HOURS)
     Route: 048
     Dates: start: 20150820
  5. TASIGNA [Suspect]
     Active Substance: NILOTINIB
     Dosage: 200 MG, QID
     Route: 048
  6. TASIGNA [Suspect]
     Active Substance: NILOTINIB
     Dosage: 800 MG, QD
     Route: 048
  7. TASIGNA [Suspect]
     Active Substance: NILOTINIB
     Dosage: 400 MG, QD ( (CAPSULE OF 200 EVERY 12 HOURS)
     Route: 048
     Dates: start: 20171010
  8. TASIGNA [Suspect]
     Active Substance: NILOTINIB
     Route: 065
     Dates: start: 2017
  9. TASIGNA [Suspect]
     Active Substance: NILOTINIB
     Route: 048
     Dates: start: 201710
  10. TASIGNA [Suspect]
     Active Substance: NILOTINIB
     Dosage: 300 MG, Q12H
     Route: 048
  11. TASIGNA [Suspect]
     Active Substance: NILOTINIB
     Dosage: 300 MG, Q12H
     Route: 065
     Dates: end: 2024
  12. TASIGNA [Suspect]
     Active Substance: NILOTINIB
     Dosage: 200 MG, Q12H
     Route: 048
     Dates: start: 2024
  13. TASIGNA [Suspect]
     Active Substance: NILOTINIB
     Dosage: 600 MG, QD
     Route: 048
  14. TASIGNA [Suspect]
     Active Substance: NILOTINIB
     Dosage: 200 MG, Q12H
     Route: 048
  15. ISONIAZID [Concomitant]
     Active Substance: ISONIAZID
     Indication: Latent tuberculosis
     Dosage: 300 MG, QD (1 DAILY)
     Route: 065
     Dates: start: 20150804, end: 20151110

REACTIONS (30)
  - Drug-induced liver injury [Unknown]
  - Hepatic pain [Recovering/Resolving]
  - Liver function test abnormal [Recovering/Resolving]
  - Rash [Recovering/Resolving]
  - Nausea [Unknown]
  - Headache [Unknown]
  - Chest pain [Unknown]
  - Chronic myeloid leukaemia recurrent [Unknown]
  - Haemorrhage [Unknown]
  - Platelet count increased [Unknown]
  - White blood cell count increased [Unknown]
  - Chronic myeloid leukaemia [Not Recovered/Not Resolved]
  - Gastritis [Unknown]
  - Pruritus [Not Recovered/Not Resolved]
  - Alopecia [Not Recovered/Not Resolved]
  - Abdominal pain upper [Recovering/Resolving]
  - Movement disorder [Unknown]
  - Discomfort [Recovering/Resolving]
  - Liver disorder [Recovering/Resolving]
  - Fatigue [Unknown]
  - Pain in extremity [Unknown]
  - Blood bilirubin increased [Recovering/Resolving]
  - Erythema [Not Recovered/Not Resolved]
  - Dry skin [Unknown]
  - Ill-defined disorder [Unknown]
  - Insomnia [Not Recovered/Not Resolved]
  - Toxicity to various agents [Not Recovered/Not Resolved]
  - Transaminases increased [Not Recovered/Not Resolved]
  - Jaundice [Recovered/Resolved]
  - Inappropriate schedule of product administration [Unknown]

NARRATIVE: CASE EVENT DATE: 20150901
